FAERS Safety Report 8770646 (Version 1)
Quarter: 2012Q4

REPORT INFORMATION
  Report Type: Report from Study
  Country: DE (occurrence: DE)
  Receive Date: 20120907
  Receipt Date: 20120907
  Transmission Date: 20130627
  Serious: Yes (Death, Life-Threatening)
  Sender: FDA-Public Use
  Company Number: DE-ROCHE-1111906

PATIENT
  Age: 56 Year
  Sex: Female

DRUGS (5)
  1. MABTHERA [Suspect]
     Indication: POST TRANSPLANT LYMPHOPROLIFERATIVE DISORDER
     Route: 065
  2. CYCLOPHOSPHAMIDE [Suspect]
     Indication: POST TRANSPLANT LYMPHOPROLIFERATIVE DISORDER
     Route: 042
     Dates: start: 20030127
  3. VINCRISTINE [Suspect]
     Indication: POST TRANSPLANT LYMPHOPROLIFERATIVE DISORDER
     Route: 042
     Dates: start: 20030127
  4. PREDNISOLONE [Suspect]
     Indication: POST TRANSPLANT LYMPHOPROLIFERATIVE DISORDER
     Route: 042
     Dates: start: 20030127
  5. DOXORUBICIN HYDROCHLORIDE [Suspect]
     Indication: POST TRANSPLANT LYMPHOPROLIFERATIVE DISORDER
     Route: 042
     Dates: start: 20030127

REACTIONS (1)
  - Pneumocystis jiroveci pneumonia [Fatal]
